FAERS Safety Report 8159043-7 (Version None)
Quarter: 2012Q1

REPORT INFORMATION
  Report Type: 
  Country: None (occurrence: None)
  Receive Date: 20120103
  Receipt Date: 20111101
  Transmission Date: 20120608
  Serious: No
  Sender: FDA-Public Use
  Company Number: AE-2011-002965

PATIENT
  Age: 56 Year
  Sex: Male
  Weight: 88.905 kg

DRUGS (8)
  1. PEGASYS [Concomitant]
  2. INCIVEK [Suspect]
     Dosage: 2571.4286 MG (750 MG, 1 IN 7 HR), ORAL, 2250 MG (750 MG, 1 IN 8 HR), ORAL
     Route: 048
     Dates: start: 20111101
  3. INCIVEK [Suspect]
     Dosage: 2571.4286 MG (750 MG, 1 IN 7 HR), ORAL, 2250 MG (750 MG, 1 IN 8 HR), ORAL
     Route: 048
     Dates: start: 20111014
  4. IMODIUM [Concomitant]
  5. RIBAVIRIN [Concomitant]
  6. NORCO [Concomitant]
  7. FLOMAX [Concomitant]
  8. REQUIP [Concomitant]

REACTIONS (4)
  - FEELING ABNORMAL [None]
  - DEPRESSED MOOD [None]
  - FATIGUE [None]
  - ANORECTAL DISCOMFORT [None]
